FAERS Safety Report 18699203 (Version 1)
Quarter: 2021Q1

REPORT INFORMATION
  Report Type: Spontaneous
  Country: ES (occurrence: ES)
  Receive Date: 20210105
  Receipt Date: 20210105
  Transmission Date: 20210419
  Serious: Yes (Hospitalization, Other)
  Sender: FDA-Public Use
  Company Number: ES-DRREDDYS-GER/SPN/18/0106228

PATIENT
  Age: 86 Year
  Sex: Male

DRUGS (3)
  1. DAPTOMYCIN. [Suspect]
     Active Substance: DAPTOMYCIN
     Indication: INTERVERTEBRAL DISCITIS
  2. PREDNISONE. [Suspect]
     Active Substance: PREDNISONE
     Indication: POLYMYALGIA RHEUMATICA
  3. CEFEPIME [Concomitant]
     Active Substance: CEFEPIME HYDROCHLORIDE
     Indication: INTERVERTEBRAL DISCITIS

REACTIONS (13)
  - Metabolic acidosis [Recovered/Resolved]
  - Acute kidney injury [Recovered/Resolved]
  - Myalgia [Recovered/Resolved]
  - Uraemic encephalopathy [Recovered/Resolved]
  - Rhabdomyolysis [Recovered/Resolved]
  - Haemoptysis [Recovered/Resolved]
  - Mucosal haemorrhage [Recovered/Resolved]
  - Choluria [Recovered/Resolved]
  - Asthenia [Recovered/Resolved]
  - Haematuria [Recovered/Resolved]
  - Skin haemorrhage [Recovered/Resolved]
  - Anaemia [Recovered/Resolved]
  - Oliguria [Recovered/Resolved]
